FAERS Safety Report 6919495-4 (Version None)
Quarter: 2010Q3

REPORT INFORMATION
  Report Type: 
  Country: None (occurrence: None)
  Receive Date: 20100729
  Receipt Date: 20090720
  Transmission Date: 20110219
  Serious: Yes (Other)
  Sender: FDA-Public Use
  Company Number: US-JNJFOC-20090706719

PATIENT
  Sex: Female

DRUGS (1)
  1. IMODIUM [Suspect]
     Indication: GASTROINTESTINAL DISORDER
     Dosage: 24 DOSE(S), IN 1 DAY, ORAL
     Route: 048

REACTIONS (2)
  - OVERDOSE [None]
  - PRODUCT PACKAGING QUANTITY ISSUE [None]
